FAERS Safety Report 6709554-3 (Version None)
Quarter: 2010Q2

REPORT INFORMATION
  Report Type: 
  Country: None (occurrence: None)
  Receive Date: 20100504
  Receipt Date: 20100420
  Transmission Date: 20101027
  Serious: Yes (Hospitalization, Other)
  Sender: FDA-Public Use
  Company Number: US-ROCHE-692339

PATIENT
  Sex: Female
  Weight: 61.2 kg

DRUGS (11)
  1. BONIVA [Suspect]
     Indication: OSTEOPOROSIS
     Dosage: STRENGTH AND DOSE REPORTED AS 3 MG/ML
     Route: 042
     Dates: start: 20100305
  2. BUMEX [Concomitant]
     Indication: BLOOD PRESSURE INCREASED
     Route: 048
  3. QUINAPRIL [Concomitant]
     Indication: BLOOD PRESSURE INCREASED
     Route: 048
  4. METOPROLOL [Concomitant]
  5. CALCIUM [Concomitant]
  6. NEXIUM [Concomitant]
     Indication: ILL-DEFINED DISORDER
     Dosage: FREQUENCY: QD
     Route: 048
  7. CRESTOR [Concomitant]
     Route: 048
  8. LORATADINE [Concomitant]
     Route: 048
  9. MIRALAX [Concomitant]
     Indication: CONSTIPATION
     Dosage: PRN
  10. NASONEX [Concomitant]
     Dosage: PRN, SPRAY
  11. FISH OIL [Concomitant]

REACTIONS (9)
  - ABDOMINAL DISCOMFORT [None]
  - ABDOMINAL PAIN UPPER [None]
  - BACK PAIN [None]
  - FLATULENCE [None]
  - GASTROINTESTINAL PAIN [None]
  - INFECTION [None]
  - LOCAL REACTION [None]
  - NAUSEA [None]
  - PAIN [None]
